FAERS Safety Report 8555994-X (Version None)
Quarter: 2012Q3

REPORT INFORMATION
  Report Type: 
  Country: None (occurrence: None)
  Receive Date: 20120719
  Receipt Date: 20120706
  Transmission Date: 20120928
  Serious: Yes (Hospitalization)
  Sender: FDA-Public Use
  Company Number: 1320249

PATIENT
  Age: 75 Year
  Sex: Female
  Weight: 35.3806 kg

DRUGS (5)
  1. CYCLOPHOSPHAMIDE [Suspect]
     Indication: DIFFUSE LARGE B-CELL LYMPHOMA
     Dosage: 7300 MG MILLIGRAM(S), INTRAVENOUS (NOT OTHERWISE SPECIFIED)
     Route: 042
     Dates: start: 20110524, end: 20110609
  2. DOXORUBICIN HYDROCHLORIDE [Suspect]
     Indication: DIFFUSE LARGE B-CELL LYMPHOMA
     Dosage: 85 MG MILLIGRAM(S), INTRAVENOUS (NOT OTHERWISE SPECIFIED)
     Route: 042
     Dates: start: 20110524, end: 20110609
  3. VINCRISTINE SULFATE [Suspect]
     Indication: DIFFUSE LARGE B-CELL LYMPHOMA
     Dosage: 2 MG MILLIGRAM(S), INTRAVENOUS (NOT OTHERWISE SPECIFIED)
     Route: 042
     Dates: start: 20110524, end: 20110609
  4. NEULASTA [Suspect]
     Indication: PROPHYLAXIS
     Dosage: 6 MG MILLIGRAM(S), SUBCUTANEOUS
     Route: 058
     Dates: start: 20110615
  5. RITUXIMAB [Suspect]
     Indication: DIFFUSE LARGE B-CELL LYMPHOMA
     Dosage: 650 MG MILLIGRAM(S), INTRAVENOUS (NOT OTHERWISE SPECIFIED)
     Route: 042
     Dates: start: 20110524, end: 20110609

REACTIONS (2)
  - NEUTROPENIC SEPSIS [None]
  - DRUG INEFFECTIVE [None]
